FAERS Safety Report 6039990-2 (Version None)
Quarter: 2009Q1

REPORT INFORMATION
  Report Type: 
  Country: None (occurrence: None)
  Receive Date: 20090116
  Receipt Date: 20071108
  Transmission Date: 20090719
  Serious: No
  Sender: FDA-Public Use
  Company Number: US-BRISTOL-MYERS SQUIBB COMPANY-13975925

PATIENT
  Age: 45 Year
  Sex: Female
  Weight: 114 kg

DRUGS (9)
  1. ABILIFY [Suspect]
     Indication: TACHYPHRENIA
     Dosage: STARTED ABILIFY 5 MG ON 31-OCT-2007. INCREASED TO 10 MG THEN TO 15 MG ON 05-NOV-2007
     Route: 048
     Dates: start: 20071105
  2. ABILIFY [Suspect]
     Indication: DEPRESSION
     Dosage: STARTED ABILIFY 5 MG ON 31-OCT-2007. INCREASED TO 10 MG THEN TO 15 MG ON 05-NOV-2007
     Route: 048
     Dates: start: 20071105
  3. EFFEXOR [Concomitant]
  4. TOPAMAX [Concomitant]
  5. CLONOPIN [Concomitant]
  6. TRAZODONE HCL [Concomitant]
  7. NEXIUM [Concomitant]
  8. RELAFEN [Concomitant]
  9. WELLBUTRIN [Concomitant]

REACTIONS (3)
  - ANOREXIA [None]
  - EUPHORIC MOOD [None]
  - INAPPROPRIATE AFFECT [None]
